FAERS Safety Report 10065639 (Version 1)
Quarter: 2014Q2

REPORT INFORMATION
  Report Type: Spontaneous
  Country: US (occurrence: US)
  Receive Date: 20140408
  Receipt Date: 20140408
  Transmission Date: 20141212
  Serious: No
  Sender: FDA-Public Use
  Company Number: US-PFIZER INC-2014084790

PATIENT
  Sex: Female

DRUGS (3)
  1. LYRICA [Suspect]
     Dosage: UNK
  2. OXYCONTIN [Suspect]
     Dosage: UNK
  3. PERCOCET [Suspect]
     Dosage: UNK

REACTIONS (5)
  - Paraesthesia [Unknown]
  - Feeling cold [Unknown]
  - Feeling hot [Unknown]
  - Fibromyalgia [Unknown]
  - Nerve injury [Unknown]
